FAERS Safety Report 5124239-5 (Version None)
Quarter: 2006Q4

REPORT INFORMATION
  Report Type: 
  Country: None (occurrence: None)
  Receive Date: 20061010
  Receipt Date: 20060721
  Transmission Date: 20070319
  Serious: Yes (Other)
  Sender: FDA-Public Use
  Company Number: ES-BRISTOL-MYERS SQUIBB COMPANY-13449129

PATIENT
  Age: 33 Year
  Sex: Male
  Weight: 62 kg

DRUGS (6)
  1. REYATAZ [Suspect]
     Indication: HIV INFECTION
     Dates: start: 20051024, end: 20060727
  2. NORVIR [Concomitant]
     Dates: start: 20051024, end: 20060727
  3. VIREAD [Concomitant]
     Dates: start: 20030915, end: 20060727
  4. EPIVIR [Concomitant]
     Dates: start: 20030915, end: 20060727
  5. METHADONE HCL [Concomitant]
     Indication: DRUG ABUSER
     Dates: start: 20060110
  6. TRANKIMAZIN [Concomitant]
     Indication: ANXIETY

REACTIONS (1)
  - TRANSAMINASES INCREASED [None]
